FAERS Safety Report 20226585 (Version 1)
Quarter: 2021Q4

REPORT INFORMATION
  Report Type: Spontaneous
  Country: KR (occurrence: KR)
  Receive Date: 20211224
  Receipt Date: 20211224
  Transmission Date: 20220303
  Serious: Yes (Other)
  Sender: FDA-Public Use
  Company Number: KR-ASTELLAS-2021US049212

PATIENT
  Sex: Male

DRUGS (4)
  1. MIRABEGRON [Interacting]
     Active Substance: MIRABEGRON
     Indication: Pollakiuria
     Route: 065
     Dates: start: 202112
  2. MIRABEGRON [Interacting]
     Active Substance: MIRABEGRON
     Indication: Micturition urgency
  3. MIRABEGRON [Interacting]
     Active Substance: MIRABEGRON
     Indication: Prostatitis
  4. TADALAFIL [Interacting]
     Active Substance: TADALAFIL
     Indication: Erectile dysfunction
     Route: 065

REACTIONS (4)
  - Erectile dysfunction [Unknown]
  - Drug ineffective for unapproved indication [Unknown]
  - Drug interaction [Unknown]
  - Off label use [Unknown]
